FAERS Safety Report 9134550 (Version 2)
Quarter: 2013Q1

REPORT INFORMATION
  Report Type: Report from Study
  Country: JP (occurrence: JP)
  Receive Date: 20130304
  Receipt Date: 20130311
  Transmission Date: 20140127
  Serious: Yes (Hospitalization)
  Sender: FDA-Public Use
  Company Number: JP-JNJFOC-20130213457

PATIENT
  Age: 43 Year
  Sex: Male
  Weight: 82.3 kg

DRUGS (4)
  1. PALIPERIDONE PALMITATE [Suspect]
     Indication: SCHIZOPHRENIA
     Dosage: RIGHT DELTOID??MEDICATION KIT NUMBER 30189
     Route: 030
     Dates: start: 20130212, end: 20130212
  2. PALIPERIDONE PALMITATE [Suspect]
     Indication: SCHIZOPHRENIA
     Dosage: LEFT DELTOID??MEDICATION KIT NUMBER 40171
     Route: 030
     Dates: start: 20130207, end: 20130207
  3. PALIPERIDONE PALMITATE [Suspect]
     Indication: SCHIZOPHRENIA
     Route: 030
  4. PALIPERIDONE [Concomitant]
     Indication: SCHIZOPHRENIA
     Route: 048
     Dates: start: 20130129, end: 20130206

REACTIONS (1)
  - Psychiatric symptom [Not Recovered/Not Resolved]
